FAERS Safety Report 5507355-5 (Version None)
Quarter: 2007Q4

REPORT INFORMATION
  Report Type: 
  Country: None (occurrence: None)
  Receive Date: 20071106
  Receipt Date: 20071026
  Transmission Date: 20080405
  Serious: Yes (Other)
  Sender: FDA-Public Use
  Company Number: PHRM2007FR02507

PATIENT
  Age: 64 Year
  Sex: Female

DRUGS (1)
  1. TEGRETOL [Suspect]
     Indication: EPILEPSY
     Dosage: 1.5 G DAILY
     Route: 048
     Dates: start: 20000101

REACTIONS (3)
  - ELECTROCARDIOGRAM AMBULATORY ABNORMAL [None]
  - HEART RATE DECREASED [None]
  - SINOATRIAL BLOCK [None]
